FAERS Safety Report 24071932 (Version 2)
Quarter: 2024Q3

REPORT INFORMATION
  Report Type: Report from Study
  Country: FR (occurrence: FR)
  Receive Date: 20240710
  Receipt Date: 20240729
  Transmission Date: 20241017
  Serious: Yes (Hospitalization)
  Sender: TEVA
  Company Number: FR-TEVA-VS-3216779

PATIENT
  Age: 13 Year
  Sex: Female

DRUGS (1)
  1. KETOPROFEN [Suspect]
     Active Substance: KETOPROFEN
     Indication: Intentional overdose
     Dosage: RECEIVED 14 TABLETS
     Route: 065

REACTIONS (2)
  - Acute kidney injury [Recovering/Resolving]
  - Intentional overdose [Unknown]
